FAERS Safety Report 20876461 (Version 1)
Quarter: 2022Q2

REPORT INFORMATION
  Report Type: Spontaneous
  Country: US (occurrence: US)
  Receive Date: 20220526
  Receipt Date: 20220526
  Transmission Date: 20220721
  Serious: Yes (Hospitalization, Other)
  Sender: FDA-Public Use
  Company Number: US-Accord-264444

PATIENT
  Age: 56 Year
  Sex: Male

DRUGS (2)
  1. ARIPIPRAZOLE [Suspect]
     Active Substance: ARIPIPRAZOLE
     Indication: Agitation
     Dosage: INCREASED TO 10 MG DAILY AFTER DAY-7
  2. BENZODIAZEPINE [Concomitant]
     Active Substance: BENZODIAZEPINE
     Indication: Alcohol withdrawal syndrome

REACTIONS (3)
  - Hypothermia [Recovered/Resolved]
  - Hypothyroidism [Unknown]
  - Off label use [Unknown]
